FAERS Safety Report 19100962 (Version 1)
Quarter: 2021Q2

REPORT INFORMATION
  Report Type: Spontaneous
  Country: US (occurrence: US)
  Receive Date: 20210407
  Receipt Date: 20210407
  Transmission Date: 20210717
  Serious: Yes (Hospitalization, Other)
  Sender: FDA-Public Use
  Company Number: US-NOVOPROD-799358

PATIENT
  Age: 69 Year
  Sex: Female

DRUGS (1)
  1. NOVOLOG [Suspect]
     Active Substance: INSULIN ASPART
     Indication: DIABETES MELLITUS
     Dosage: VARIES
     Route: 065

REACTIONS (6)
  - Pancreatectomy [Recovering/Resolving]
  - Splenectomy [Recovering/Resolving]
  - Pancreatic carcinoma [Recovering/Resolving]
  - Intestinal resection [Recovering/Resolving]
  - Cholecystectomy [Recovering/Resolving]
  - Drug ineffective [Unknown]

NARRATIVE: CASE EVENT DATE: 200801
